FAERS Safety Report 10952681 (Version 3)
Quarter: 2015Q2

REPORT INFORMATION
  Report Type: Spontaneous
  Country: CA (occurrence: CA)
  Receive Date: 20150325
  Receipt Date: 20150525
  Transmission Date: 20150821
  Serious: Yes (Other)
  Sender: FDA-Public Use
  Company Number: CA-ROCHE-1555539

PATIENT
  Age: 63 Year
  Sex: Female

DRUGS (5)
  1. ALLERDRYL (CANADA) [Concomitant]
  2. PREDNISONE. [Concomitant]
     Active Substance: PREDNISONE
  3. XOLAIR [Suspect]
     Active Substance: OMALIZUMAB
     Indication: ASTHMA
     Route: 058
     Dates: start: 20121023
  4. SINGULAIR [Concomitant]
     Active Substance: MONTELUKAST SODIUM
  5. SYMBICORT [Concomitant]
     Active Substance: BUDESONIDE\FORMOTEROL FUMARATE DIHYDRATE

REACTIONS (15)
  - Viral pharyngitis [Unknown]
  - Skin infection [Unknown]
  - Wound secretion [Unknown]
  - Thermal burn [Unknown]
  - Muscle tightness [Unknown]
  - Cystitis [Not Recovered/Not Resolved]
  - Paraesthesia [Unknown]
  - Rotator cuff syndrome [Unknown]
  - Gastrooesophageal reflux disease [Unknown]
  - Musculoskeletal pain [Unknown]
  - Postoperative wound complication [Unknown]
  - Chest pain [Unknown]
  - Middle insomnia [Unknown]
  - Hypoaesthesia [Unknown]
  - Arthralgia [Unknown]

NARRATIVE: CASE EVENT DATE: 201411
